FAERS Safety Report 8690781 (Version 2)
Quarter: 2012Q4

REPORT INFORMATION
  Report Type: 
  Country: CN (occurrence: CN)
  Receive Date: 20120728
  Receipt Date: 20121003
  Transmission Date: 20130627
  Serious: Yes (Death, Hospitalization)
  Sender: FDA-Public Use
  Company Number: CN-009507513-1206USA04731

PATIENT
  Age: 61 Year
  Sex: Male

DRUGS (12)
  1. COZAAR [Suspect]
     Indication: PRODUCT USED FOR UNKNOWN INDICATION
     Dosage: 50 mg, qd
     Route: 048
     Dates: start: 20110211, end: 20110425
  2. PLACEBO [Suspect]
     Indication: CARDIOVASCULAR EVENT PROPHYLAXIS
     Dosage: UNK UNK, qd
     Route: 048
     Dates: start: 20110303, end: 20110407
  3. SIMVASTATIN [Concomitant]
     Dosage: 20 mg, qd
     Dates: start: 20110211, end: 20110426
  4. AMLODIPINE [Concomitant]
     Dosage: 5 mg, qd
     Dates: start: 20110211, end: 20110506
  5. ATORVASTATIN CALCIUM [Concomitant]
     Dosage: 400 mg, qd
     Dates: start: 20110425, end: 20120428
  6. TORSEMIDE [Concomitant]
     Dosage: 40 mg, qd
     Dates: start: 20110425, end: 20110428
  7. PRAZOSIN [Concomitant]
     Dosage: 0.5 mg, qd
     Dates: start: 20110427, end: 20110428
  8. OMEPRAZOLE [Concomitant]
     Dosage: 40 mg, qd
     Dates: start: 20110429, end: 20110501
  9. DILTIAZEM HYDROCHLORIDE [Concomitant]
     Dosage: 20 mg, qd
     Dates: start: 20110501, end: 20110505
  10. NIFEDIPINE [Concomitant]
     Dosage: 30 mg, ONCE
     Dates: start: 20110425, end: 20110425
  11. CLOPIDOGREL [Concomitant]
     Dosage: 75 mg, qd
     Dates: start: 20110211, end: 20110506
  12. ASPIRIN [Concomitant]
     Dosage: 100 mg, qd
     Dates: start: 20110211, end: 20110506

REACTIONS (1)
  - Renal failure acute [Fatal]
